FAERS Safety Report 23531525 (Version 1)
Quarter: 2024Q1

REPORT INFORMATION
  Report Type: Report from Study
  Country: US (occurrence: US)
  Receive Date: 20240216
  Receipt Date: 20240216
  Transmission Date: 20240409
  Serious: Yes (Other)
  Sender: FDA-Public Use
  Company Number: US-UCBSA-2024006799

PATIENT
  Age: 56 Year
  Sex: Male
  Weight: 69.5 kg

DRUGS (16)
  1. BRIVARACETAM [Suspect]
     Active Substance: BRIVARACETAM
     Indication: Epilepsy
     Dosage: 100 MILLIGRAM, 2X/DAY (BID)
     Route: 048
     Dates: end: 20231108
  2. BRIVARACETAM [Suspect]
     Active Substance: BRIVARACETAM
     Indication: Seizure
     Dosage: 100 MILLIGRAM, 2X/DAY (BID)
     Route: 048
     Dates: start: 20231110
  3. KEPPRA [Suspect]
     Active Substance: LEVETIRACETAM
     Indication: Epilepsy
     Dosage: 1000 MILLIGRAM, 2X/DAY (BID)
     Route: 048
  4. KEPPRA [Suspect]
     Active Substance: LEVETIRACETAM
     Indication: Seizure
  5. NAYZILAM [Concomitant]
     Active Substance: MIDAZOLAM
     Indication: Product used for unknown indication
     Dosage: 5 MILLIGRAM, 1 SPRAY INTO 1 NOSTRIL AND OTHER SPRAY NON-AEROSOL INTO OPPOSITE NOSTRIL AFTER 10 MINUT
     Route: 045
     Dates: start: 20230919, end: 20231110
  6. ZONEGRAN [Concomitant]
     Active Substance: ZONISAMIDE
     Indication: Product used for unknown indication
     Dosage: 100 MILLIGRAM, ONCE DAILY (QD) NIGHTLY
     Route: 048
     Dates: start: 20231019
  7. ZONEGRAN [Concomitant]
     Active Substance: ZONISAMIDE
     Dosage: 200 MILLIGRAM, ONCE DAILY (QD) NIGHTLY
     Route: 048
  8. ZONEGRAN [Concomitant]
     Active Substance: ZONISAMIDE
     Dosage: 300 MILLIGRAM, ONCE DAILY (QD) NIGHTLY
     Route: 048
  9. XCOPRI [Concomitant]
     Active Substance: CENOBAMATE
     Indication: Product used for unknown indication
     Dosage: 200 MILLIGRAM, 2X/DAY (BID)
     Route: 048
     Dates: start: 20230622, end: 20231130
  10. XCOPRI [Concomitant]
     Active Substance: CENOBAMATE
     Dosage: 150 MILLIGRAM DAILY
     Route: 048
     Dates: start: 20230828, end: 20231027
  11. CYMBALTA [Concomitant]
     Active Substance: DULOXETINE HYDROCHLORIDE
     Indication: Product used for unknown indication
     Dosage: 60 MILLIGRAM, ONCE DAILY (QD) EVERY MORNING
     Route: 048
     Dates: start: 20230504
  12. LEXAPRO [Concomitant]
     Active Substance: ESCITALOPRAM OXALATE
     Indication: Product used for unknown indication
     Dosage: 20 MILLIGRAM, ONCE DAILY (QD)
     Route: 048
  13. LEXAPRO [Concomitant]
     Active Substance: ESCITALOPRAM OXALATE
     Dosage: 30 MILLIGRAM, ONCE DAILY (QD)
     Route: 048
  14. NEXIUM I.V. [Concomitant]
     Active Substance: ESOMEPRAZOLE SODIUM
     Indication: Product used for unknown indication
     Dosage: 40 MILLIGRAM, ONCE DAILY (QD)
     Route: 048
     Dates: start: 20230914
  15. PRILOSEC [Concomitant]
     Active Substance: OMEPRAZOLE MAGNESIUM
     Indication: Product used for unknown indication
     Dosage: 40 MILLIGRAM, 2X/DAY (BID)
     Dates: start: 20230902, end: 20231110
  16. ZYPREXA [Concomitant]
     Active Substance: OLANZAPINE
     Indication: Product used for unknown indication
     Dosage: 5 MILLIGRAM, ONCE DAILY (QD)
     Route: 048
     Dates: start: 20231030

REACTIONS (11)
  - Suicidal ideation [Unknown]
  - Seizure cluster [Unknown]
  - Depression [Recovering/Resolving]
  - Appetite disorder [Unknown]
  - Gait disturbance [Unknown]
  - Behaviour disorder [Unknown]
  - Weight decreased [Unknown]
  - Memory impairment [Unknown]
  - Back pain [Recovering/Resolving]
  - Fall [Unknown]
  - Inability to afford medication [Unknown]

NARRATIVE: CASE EVENT DATE: 20231019
